FAERS Safety Report 14018795 (Version 1)
Quarter: 2017Q3

REPORT INFORMATION
  Report Type: Spontaneous
  Country: US (occurrence: US)
  Receive Date: 20170928
  Receipt Date: 20170928
  Transmission Date: 20171128
  Serious: No
  Sender: FDA-Public Use
  Company Number: US-PFIZER INC-2017417479

PATIENT
  Age: 78 Year
  Sex: Female
  Weight: 58.51 kg

DRUGS (2)
  1. FLECTOR [Suspect]
     Active Substance: DICLOFENAC EPOLAMINE
     Indication: PAIN
     Dosage: ONE PATCH TO RIGHT KNEE AND ONE PATCH TO UPPER RIGHT THIGH
     Route: 062
     Dates: start: 20170925
  2. DICLOFENAC W/MISOPROSTOL [Concomitant]
     Active Substance: DICLOFENAC SODIUM\MISOPROSTOL
     Indication: PAIN
     Dosage: [DICLOFENAC 50MG , MISOPROSTOL 200MG] TB TWICE DAILY WITH FOOD AS NEEDED

REACTIONS (2)
  - Burning sensation [Not Recovered/Not Resolved]
  - Intentional product misuse [Unknown]

NARRATIVE: CASE EVENT DATE: 20170925
